FAERS Safety Report 8838728 (Version 1)
Quarter: 2012Q4

REPORT INFORMATION
  Report Type: 
  Country: US (occurrence: US)
  Receive Date: 20121012
  Receipt Date: 20121012
  Transmission Date: 20130627
  Serious: Yes (Life-Threatening, Hospitalization, Other)
  Sender: FDA-Public Use
  Company Number: US-009507513-2010SP026025

PATIENT

DRUGS (5)
  1. NUVARING [Suspect]
     Indication: CONTRACEPTION
     Route: 067
     Dates: start: 2004, end: 200801
  2. NUVARING [Suspect]
     Dates: start: 200511
  3. [COMPOSITION UNSPECIFIED] [Suspect]
     Indication: PULMONARY EMBOLISM
  4. DARVOCET-N [Concomitant]
  5. VALIUM [Concomitant]

REACTIONS (18)
  - Abortion spontaneous [Unknown]
  - Ovarian cyst [Unknown]
  - Anaemia [Not Recovered/Not Resolved]
  - Cardiomegaly [Unknown]
  - Necrosis [Unknown]
  - Abdominoplasty [Unknown]
  - Pulmonary embolism [Unknown]
  - Atelectasis [Unknown]
  - Leukocytosis [Unknown]
  - Hiatus hernia [Unknown]
  - Pyrexia [Unknown]
  - Weight decreased [Unknown]
  - Uterine leiomyoma [Unknown]
  - Unintended pregnancy [Recovered/Resolved]
  - Depression [Unknown]
  - Anxiety [Unknown]
  - Postpartum depression [Unknown]
  - Cystitis [Unknown]
